FAERS Safety Report 18952995 (Version 1)
Quarter: 2021Q1

REPORT INFORMATION
  Report Type: Spontaneous
  Country: US (occurrence: US)
  Receive Date: 20210226
  Receipt Date: 20210226
  Transmission Date: 20210420
  Serious: No
  Sender: FDA-Public Use
  Company Number: None

PATIENT
  Age: 80 Year
  Sex: Male

DRUGS (10)
  1. VERAPAMIL HCL [Concomitant]
     Active Substance: VERAPAMIL HYDROCHLORIDE
  2. CALCIUM [Concomitant]
     Active Substance: CALCIUM
  3. NITROSTAT [Concomitant]
     Active Substance: NITROGLYCERIN
  4. ABIRATERONE 500 MG TABS [Suspect]
     Active Substance: ABIRATERONE
     Indication: PROSTATE CANCER
     Route: 048
     Dates: start: 20190509
  5. LISINOPRIL. [Concomitant]
     Active Substance: LISINOPRIL
  6. ALEVE [Concomitant]
     Active Substance: NAPROXEN SODIUM
  7. SOLIFENACIN SUCCINATE. [Concomitant]
     Active Substance: SOLIFENACIN SUCCINATE
  8. FIRMAGON [Concomitant]
     Active Substance: DEGARELIX ACETATE
  9. ASPIRIN 81 [Concomitant]
     Active Substance: ASPIRIN
  10. OXYBUTYNIN CHLORIDE. [Concomitant]
     Active Substance: OXYBUTYNIN CHLORIDE

REACTIONS (2)
  - Coronary arterial stent insertion [None]
  - Heart valve replacement [None]

NARRATIVE: CASE EVENT DATE: 20210225
